FAERS Safety Report 5084749-6 (Version None)
Quarter: 2006Q3

REPORT INFORMATION
  Report Type: 
  Country: None (occurrence: None)
  Receive Date: 20060815
  Receipt Date: 20060801
  Transmission Date: 20061208
  Serious: Yes (Death)
  Sender: FDA-Public Use
  Company Number: CERZ-11292

PATIENT
  Age: 12 Month
  Sex: Female
  Weight: 5 kg

DRUGS (4)
  1. CEREZYME [Suspect]
     Indication: GAUCHER'S DISEASE
     Dosage: 80 U/KG Q2WKS IV
     Route: 042
     Dates: start: 20060502, end: 20060721
  2. VALPROATE SODIUM [Concomitant]
  3. BACLOFEN [Concomitant]
  4. DANTROLENE SODIUM [Concomitant]

REACTIONS (7)
  - CONVULSION [None]
  - DISEASE PROGRESSION [None]
  - GAUCHER'S DISEASE [None]
  - LARYNGOSPASM [None]
  - NONSPECIFIC REACTION [None]
  - PNEUMONIA ASPIRATION [None]
  - REFUSAL OF TREATMENT BY RELATIVE [None]
